FAERS Safety Report 7481164-2 (Version None)
Quarter: 2011Q2

REPORT INFORMATION
  Report Type: 
  Country: None (occurrence: None)
  Receive Date: 20110516
  Receipt Date: 20110510
  Transmission Date: 20111010
  Serious: Yes (Death, Life-Threatening, Hospitalization)
  Sender: FDA-Public Use
  Company Number: DE-TEVA-280946GER

PATIENT
  Age: 83 Year
  Sex: Female

DRUGS (5)
  1. LORAZEPAM [Suspect]
     Route: 048
     Dates: start: 20070107, end: 20070110
  2. LORAZEPAM [Suspect]
     Route: 048
     Dates: start: 20080111, end: 20080113
  3. LORAZEPAM [Suspect]
     Route: 048
     Dates: start: 20071227, end: 20080106
  4. LORAZEPAM [Suspect]
     Route: 048
     Dates: end: 20071226
  5. FUROSEMIDE [Concomitant]
     Route: 048
     Dates: end: 20080113

REACTIONS (1)
  - PNEUMONIA [None]
